FAERS Safety Report 7624002-7 (Version None)
Quarter: 2011Q3

REPORT INFORMATION
  Report Type: 
  Country: None (occurrence: None)
  Receive Date: 20110701
  Receipt Date: 20110201
  Transmission Date: 20111222
  Serious: Yes (Other)
  Sender: FDA-Public Use
  Company Number: 7039723

PATIENT
  Age: 19 Year
  Sex: Male

DRUGS (2)
  1. KEPPRA [Concomitant]
  2. REBIF [Suspect]
     Indication: PRODUCT USED FOR UNKNOWN INDICATION
     Dosage: 44 MCG, 3 IN 1, SUBCUTANEOUS
     Route: 058
     Dates: start: 20101103

REACTIONS (1)
  - CONVULSION [None]
